FAERS Safety Report 9452336 (Version 2)
Quarter: 2013Q3

REPORT INFORMATION
  Report Type: Spontaneous
  Country: US (occurrence: US)
  Receive Date: 20130812
  Receipt Date: 20130823
  Transmission Date: 20140515
  Serious: Yes (Other)
  Sender: FDA-Public Use
  Company Number: US-AMGEN-USASP2013055855

PATIENT
  Age: 87 Year
  Sex: Female

DRUGS (2)
  1. PROLIA [Suspect]
     Indication: OSTEOPOROSIS
     Dosage: UNK
     Route: 065
     Dates: start: 20130508
  2. TEMAZEPAM [Concomitant]

REACTIONS (6)
  - Jaw disorder [Unknown]
  - Deafness [Unknown]
  - Abscess jaw [Unknown]
  - Loose tooth [Unknown]
  - Tooth disorder [Unknown]
  - Tooth loss [Unknown]
